FAERS Safety Report 25386048 (Version 1)
Quarter: 2025Q2

REPORT INFORMATION
  Report Type: Spontaneous
  Country: IE (occurrence: IE)
  Receive Date: 20250602
  Receipt Date: 20250602
  Transmission Date: 20250716
  Serious: Yes (Other)
  Sender: RANBAXY
  Company Number: IE-SUN PHARMACEUTICAL INDUSTRIES LTD-2025R1-509394

PATIENT
  Age: 20 Year
  Sex: Female

DRUGS (3)
  1. METFORMIN [Suspect]
     Active Substance: METFORMIN HYDROCHLORIDE
     Indication: Diabetes mellitus
     Dosage: 500 MILLIGRAM, BID
     Route: 065
  2. INSULIN NOS [Suspect]
     Active Substance: INSULIN NOS
     Indication: Diabetes mellitus
     Route: 065
  3. CARBIMAZOLE [Suspect]
     Active Substance: CARBIMAZOLE
     Indication: Graves^ disease
     Route: 065

REACTIONS (3)
  - Exposure during pregnancy [Unknown]
  - Foetal death [Unknown]
  - Ventricular septal defect [Unknown]
